FAERS Safety Report 14377032 (Version 1)
Quarter: 2018Q1

REPORT INFORMATION
  Report Type: Spontaneous
  Country: US (occurrence: US)
  Receive Date: 20180110
  Receipt Date: 20180110
  Transmission Date: 20180509
  Serious: No
  Sender: FDA-Public Use
  Company Number: None

PATIENT
  Age: 61 Year
  Sex: Male

DRUGS (1)
  1. DABIGATRAN [Suspect]
     Active Substance: DABIGATRAN
     Route: 048
     Dates: start: 20161011

REACTIONS (10)
  - Blood urea increased [None]
  - Atrial fibrillation [None]
  - Gastric haemorrhage [None]
  - Diarrhoea [None]
  - Haematocrit decreased [None]
  - Haemoglobin decreased [None]
  - Blood pressure decreased [None]
  - Rectal haemorrhage [None]
  - Thrombocytopenia [None]
  - Blood glucose increased [None]

NARRATIVE: CASE EVENT DATE: 20171003
